FAERS Safety Report 9019477 (Version 2)
Quarter: 2013Q4

REPORT INFORMATION
  Report Type: Spontaneous
  Country: US (occurrence: US)
  Receive Date: 20130118
  Receipt Date: 20131003
  Transmission Date: 20140711
  Serious: Yes (Hospitalization, Other)
  Sender: FDA-Public Use
  Company Number: US-009507513-2010SP062584

PATIENT
  Sex: Female
  Weight: 96.62 kg

DRUGS (1)
  1. NUVARING [Suspect]
     Indication: CONTRACEPTION
     Route: 067
     Dates: start: 200703, end: 2008

REACTIONS (22)
  - Nephrolithiasis [Unknown]
  - Portal vein thrombosis [Not Recovered/Not Resolved]
  - Gastric disorder [Unknown]
  - Blood cholesterol increased [Not Recovered/Not Resolved]
  - Gastrooesophageal reflux disease [Not Recovered/Not Resolved]
  - Haemorrhoids [Unknown]
  - Arthralgia [Unknown]
  - Sleep disorder [Unknown]
  - Trichomoniasis [Recovered/Resolved]
  - Flank pain [Unknown]
  - Hepatic cyst [Unknown]
  - Renal cyst [Not Recovered/Not Resolved]
  - Abdominal pain [Recovered/Resolved]
  - Liver function test abnormal [Recovered/Resolved]
  - Constipation [Unknown]
  - Protein S decreased [Recovered/Resolved]
  - Angiomyolipoma [Unknown]
  - Cholecystitis chronic [Unknown]
  - Cholecystectomy [Unknown]
  - Gastric bypass [Unknown]
  - Leukopenia [Not Recovered/Not Resolved]
  - Neutropenia [Not Recovered/Not Resolved]
